FAERS Safety Report 8806025 (Version 1)
Quarter: 2012Q4

REPORT INFORMATION
  Report Type: Spontaneous
  Country: US (occurrence: None)
  Receive Date: 20120917
  Receipt Date: 20120917
  Transmission Date: 20130627
  Serious: Yes (Hospitalization)
  Sender: FDA-Public Use
  Company Number: DKLU1084482

PATIENT
  Sex: Female

DRUGS (1)
  1. ONFI [Suspect]
     Indication: SEIZURES

REACTIONS (3)
  - Abasia [None]
  - Streptococcal infection [None]
  - Wheelchair user [None]
